FAERS Safety Report 10861624 (Version 4)
Quarter: 2015Q2

REPORT INFORMATION
  Report Type: Report from Study
  Country: FR (occurrence: FR)
  Receive Date: 20150224
  Receipt Date: 20150424
  Transmission Date: 20150821
  Serious: Yes (Death, Life-Threatening, Hospitalization, Other)
  Sender: FDA-Public Use
  Company Number: FR-EISAI MEDICAL RESEARCH-E7389-01708-CLI-FR

PATIENT
  Age: 41 Year
  Sex: Female
  Weight: 52 kg

DRUGS (7)
  1. NEUPOGEN [Concomitant]
     Active Substance: FILGRASTIM
     Indication: NEUTROPENIA
     Route: 041
     Dates: start: 20111102, end: 20111118
  2. AMOXICILLIN. [Concomitant]
     Active Substance: AMOXICILLIN
     Indication: NEUTROPENIA
     Dates: start: 20111102
  3. CLAVULANATE [Concomitant]
     Indication: NEUTROPENIA
     Dates: start: 20111102
  4. FLUCONAZOLE. [Concomitant]
     Active Substance: FLUCONAZOLE
     Indication: MUCOSAL INFLAMMATION
     Route: 041
     Dates: start: 20111102
  5. SALINE SOLUTION [Concomitant]
     Active Substance: SODIUM CHLORIDE
     Indication: DEHYDRATION
     Route: 041
     Dates: start: 20111102
  6. ERIBULIN [Suspect]
     Active Substance: ERIBULIN
     Indication: BREAST CANCER
     Route: 041
     Dates: start: 20110928, end: 20111108
  7. SODIUM [Concomitant]
     Active Substance: SODIUM

REACTIONS (7)
  - Hepatic failure [Not Recovered/Not Resolved]
  - Dehydration [Recovered/Resolved with Sequelae]
  - Thrombocytopenia [Not Recovered/Not Resolved]
  - Hepatic encephalopathy [Fatal]
  - Neutropenia [Not Recovered/Not Resolved]
  - Decreased appetite [Recovered/Resolved with Sequelae]
  - Anaemia [Recovered/Resolved]

NARRATIVE: CASE EVENT DATE: 20111102
